FAERS Safety Report 4964548-3 (Version None)
Quarter: 2006Q2

REPORT INFORMATION
  Report Type: 
  Country: None (occurrence: None)
  Receive Date: 20060406
  Receipt Date: 20060323
  Transmission Date: 20061013
  Serious: Yes (Death)
  Sender: FDA-Public Use
  Company Number: BE-GLAXOSMITHKLINE-B0417239A

PATIENT
  Sex: Male

DRUGS (1)
  1. ZYBAN [Suspect]
     Indication: SMOKING CESSATION THERAPY
     Route: 048
     Dates: start: 20020401, end: 20020501

REACTIONS (7)
  - COMPLETED SUICIDE [None]
  - HYPERSENSITIVITY [None]
  - INJURY ASPHYXIATION [None]
  - INSOMNIA [None]
  - MOOD ALTERED [None]
  - PSYCHIATRIC SYMPTOM [None]
  - SOCIAL AVOIDANT BEHAVIOUR [None]
